FAERS Safety Report 5959848-4 (Version None)
Quarter: 2008Q4

REPORT INFORMATION
  Report Type: 
  Country: None (occurrence: None)
  Receive Date: 20081120
  Receipt Date: 20081117
  Transmission Date: 20090506
  Serious: Yes (Hospitalization)
  Sender: FDA-Public Use
  Company Number: B0546624A

PATIENT
  Age: 56 Year
  Sex: Male

DRUGS (1)
  1. AUGMENTIN '125' [Suspect]
     Indication: ANTIBIOTIC PROPHYLAXIS
     Dosage: 1G PER DAY
     Route: 048
     Dates: start: 20080718, end: 20080718

REACTIONS (5)
  - ANAPHYLACTIC SHOCK [None]
  - LIP OEDEMA [None]
  - PAINFUL RESPIRATION [None]
  - SKIN INDURATION [None]
  - SKIN PLAQUE [None]
